FAERS Safety Report 8471271-X (Version None)
Quarter: 2012Q2

REPORT INFORMATION
  Report Type: 
  Country: None (occurrence: None)
  Receive Date: 20120621
  Receipt Date: 20120612
  Transmission Date: 20120825
  Serious: Yes (Hospitalization)
  Sender: FDA-Public Use
  Company Number: USA/USA/12/0024724

PATIENT
  Age: 52 Year
  Sex: Male

DRUGS (6)
  1. FLUTICASONE PROPIONATE [Suspect]
     Indication: BRONCHITIS CHRONIC
     Dosage: 250 MCG, 2 IN 1 D, NASAL ; 500 MCG, 2 IN 1 D, NASAL
     Route: 045
  2. EFAVIRENZ [Concomitant]
  3. RITONAVIR [Suspect]
     Indication: HIV INFECTION
  4. DILTIAZEM [Concomitant]
  5. FLUCONAZOLE [Suspect]
     Indication: ORAL CANDIDIASIS
     Dosage: 400 MG, 1 IN 1 D, ORAL
     Route: 048
  6. ATAZANAVIR [Concomitant]

REACTIONS (16)
  - STOMATITIS [None]
  - SECONDARY ADRENOCORTICAL INSUFFICIENCY [None]
  - BLOOD PRESSURE INCREASED [None]
  - MUSCLE SPASMS [None]
  - ODYNOPHAGIA [None]
  - DYSPHONIA [None]
  - OEDEMA PERIPHERAL [None]
  - HYPOTENSION [None]
  - CUSHING'S SYNDROME [None]
  - DYSPNOEA [None]
  - NASAL CONGESTION [None]
  - MUSCULAR WEAKNESS [None]
  - MALAISE [None]
  - FATIGUE [None]
  - BLOOD GLUCOSE INCREASED [None]
  - WHEEZING [None]
